FAERS Safety Report 14660333 (Version 4)
Quarter: 2019Q1

REPORT INFORMATION
  Report Type: Spontaneous
  Country: US (occurrence: US)
  Receive Date: 20180320
  Receipt Date: 20190214
  Transmission Date: 20190417
  Serious: Yes (Hospitalization)
  Sender: FDA-Public Use
  Company Number: US-VIFOR (INTERNATIONAL) INC.-VIT-2018-01017

PATIENT
  Age: 61 Year
  Sex: Female
  Weight: 74 kg

DRUGS (20)
  1. ONE TOUCH [Concomitant]
     Active Substance: DEXTROSE
  2. RAPAMUNE [Concomitant]
     Active Substance: SIROLIMUS
  3. CARTIA XT [Concomitant]
     Active Substance: DILTIAZEM HYDROCHLORIDE
  4. CELLCEPT [Concomitant]
     Active Substance: MYCOPHENOLATE MOFETIL\MYCOPHENOLATE MOFETIL HYDROCHLORIDE
  5. MULTIVITAMIN [Concomitant]
     Active Substance: VITAMINS
  6. VITAMIN B12 [Concomitant]
     Active Substance: CYANOCOBALAMIN
  7. TELMISARTAN. [Concomitant]
     Active Substance: TELMISARTAN
  8. ATORVASTATIN CALCIUM. [Concomitant]
     Active Substance: ATORVASTATIN CALCIUM
  9. CARVEDILOL. [Concomitant]
     Active Substance: CARVEDILOL
  10. SODIUM BICARBONATE. [Concomitant]
     Active Substance: SODIUM BICARBONATE
  11. VITAMIN D3 [Concomitant]
     Active Substance: CHOLECALCIFEROL
  12. VELTASSA [Suspect]
     Active Substance: PATIROMER
     Indication: HYPERKALAEMIA
     Route: 048
     Dates: start: 20161206
  13. FUROSEMIDE. [Concomitant]
     Active Substance: FUROSEMIDE
  14. VITAMIN C [Concomitant]
     Active Substance: ASCORBIC ACID
  15. SPIRONOLACTONE. [Concomitant]
     Active Substance: SPIRONOLACTONE
  16. CHLORTHALIDONE. [Concomitant]
     Active Substance: CHLORTHALIDONE
  17. ASPIRIN. [Concomitant]
     Active Substance: ASPIRIN
  18. AMILORIDE [Concomitant]
     Active Substance: AMILORIDE
     Indication: BLOOD PRESSURE MEASUREMENT
  19. FERROUS SULFATE. [Concomitant]
     Active Substance: FERROUS SULFATE
  20. HUMALOG MIX [Concomitant]
     Active Substance: INSULIN LISPRO

REACTIONS (8)
  - Blood potassium increased [Recovered/Resolved]
  - Pancreatitis [Unknown]
  - Malaise [Recovered/Resolved]
  - Blood pressure systolic increased [Unknown]
  - Nausea [Unknown]
  - Urinary retention [Unknown]
  - Product dose omission [Unknown]
  - Renal impairment [Unknown]

NARRATIVE: CASE EVENT DATE: 20171121
